FAERS Safety Report 5367439-1 (Version None)
Quarter: 2007Q2

REPORT INFORMATION
  Report Type: 
  Country: None (occurrence: None)
  Receive Date: 20070622
  Receipt Date: 20060808
  Transmission Date: 20071010
  Serious: No
  Sender: FDA-Public Use
  Company Number: US-ASTRAZENECA-2006UW15826

PATIENT
  Sex: Female

DRUGS (4)
  1. PULMICORT [Suspect]
     Route: 055
  2. IMURAN [Concomitant]
  3. PREDNISONE TAB [Concomitant]
  4. SEPTRA [Concomitant]

REACTIONS (1)
  - TONGUE DISCOLOURATION [None]
